FAERS Safety Report 17251029 (Version 3)
Quarter: 2021Q3

REPORT INFORMATION
  Report Type: Spontaneous
  Country: ES (occurrence: ES)
  Receive Date: 20200109
  Receipt Date: 20210910
  Transmission Date: 20211014
  Serious: Yes (Other)
  Sender: FDA-Public Use
  Company Number: ES-CELLTRION INC.-2019ES027656

PATIENT

DRUGS (2)
  1. INFLIXIMAB [Suspect]
     Active Substance: INFLIXIMAB
     Dosage: UNK (MAINTENANCE DOSE EVERY 4?8 WEEKS THEREAFTER)
     Route: 042
  2. INFLIXIMAB [Suspect]
     Active Substance: INFLIXIMAB
     Indication: UVEITIS
     Dosage: 5 MG/KG, UNK (3?5 MG/KG AT 0, 2, AND 6 WEEKS AND EVERY 4?8 WEEKS THEREAFTER)
     Route: 042

REACTIONS (3)
  - Off label use [Unknown]
  - Mouth ulceration [Unknown]
  - Product use in unapproved indication [Unknown]
